FAERS Safety Report 14653696 (Version 3)
Quarter: 2019Q4

REPORT INFORMATION
  Report Type: Spontaneous
  Country: US (occurrence: US)
  Receive Date: 20180319
  Receipt Date: 20191023
  Transmission Date: 20200122
  Serious: No
  Sender: FDA-Public Use
  Company Number: US-PFIZER INC-2018104853

PATIENT
  Age: 71 Year
  Sex: Female

DRUGS (4)
  1. LYRICA [Suspect]
     Active Substance: PREGABALIN
     Indication: NEURALGIA
  2. LYRICA [Suspect]
     Active Substance: PREGABALIN
     Indication: LISTERIOSIS
  3. LYRICA [Suspect]
     Active Substance: PREGABALIN
     Indication: SPINAL FUSION SURGERY
     Dosage: 225 MG, DAILY (150MG AT NIGHT AND 75MG DURING THE DAY )
  4. LYRICA [Suspect]
     Active Substance: PREGABALIN
     Indication: NEURALGIA
     Dosage: 150 MG, 2X/DAY

REACTIONS (8)
  - Intentional product use issue [Unknown]
  - Drug ineffective [Recovered/Resolved]
  - Sedation [Unknown]
  - Speech disorder [Unknown]
  - Dysarthria [Unknown]
  - Balance disorder [Unknown]
  - Feeling abnormal [Unknown]
  - Gait disturbance [Unknown]
